FAERS Safety Report 6310877-0 (Version None)
Quarter: 2009Q3

REPORT INFORMATION
  Report Type: 
  Country: None (occurrence: None)
  Receive Date: 20090812
  Receipt Date: 20090701
  Transmission Date: 20100115
  Serious: Yes (Hospitalization)
  Sender: FDA-Public Use
  Company Number: 001086

PATIENT
  Sex: Male
  Weight: 75 kg

DRUGS (6)
  1. VIMPAT [Suspect]
     Indication: EPILEPSY
     Dosage: ORAL, 100 MG BID ORAL
     Route: 048
     Dates: start: 20090518, end: 20090528
  2. VIMPAT [Suspect]
     Indication: EPILEPSY
     Dosage: ORAL, 100 MG BID ORAL
     Route: 048
     Dates: start: 20090529, end: 20090603
  3. LAMOTRIGINE [Concomitant]
  4. LEVETIRACETAM [Concomitant]
  5. VALPROIC ACID [Concomitant]
  6. CLOBAZAM [Concomitant]

REACTIONS (3)
  - CONDITION AGGRAVATED [None]
  - EPILEPSY [None]
  - STATUS EPILEPTICUS [None]
